FAERS Safety Report 8095042-1 (Version None)
Quarter: 2012Q1

REPORT INFORMATION
  Report Type: 
  Country: None (occurrence: None)
  Receive Date: 20120131
  Receipt Date: 20120131
  Transmission Date: 20120608
  Serious: Yes (Other)
  Sender: FDA-Public Use
  Company Number: None

PATIENT
  Age: 15 Year
  Sex: Male
  Weight: 68.038 kg

DRUGS (2)
  1. ZOLOFT [Suspect]
     Indication: DEPRESSION
     Dates: start: 20000201, end: 20000228
  2. ZOLOFT [Suspect]
     Indication: ANXIETY
     Dates: start: 20000201, end: 20000228

REACTIONS (1)
  - BIPOLAR DISORDER [None]
